FAERS Safety Report 17128962 (Version 1)
Quarter: 2019Q4

REPORT INFORMATION
  Report Type: Spontaneous
  Country: US (occurrence: US)
  Receive Date: 20191207
  Receipt Date: 20191207
  Transmission Date: 20200122
  Serious: Yes (Disabling)
  Sender: FDA-Public Use
  Company Number: None

PATIENT
  Age: 33 Year
  Sex: Male
  Weight: 74.25 kg

DRUGS (8)
  1. CREATINE [Concomitant]
     Active Substance: CREATINE
  2. ZINC. [Concomitant]
     Active Substance: ZINC
  3. SACCHAROMYCES BOULARDII [Concomitant]
     Active Substance: SACCHAROMYCES CEREVISIAE
  4. CHOLESTYRAMINE. [Suspect]
     Active Substance: CHOLESTYRAMINE
     Indication: BILE ACID MALABSORPTION
     Dosage: ?          QUANTITY:1 PACKET;?
     Route: 048
     Dates: start: 20190905, end: 20190930
  5. CULTURELLE [Concomitant]
     Active Substance: LACTOBACILLUS RHAMNOSUS
  6. 2K VITAMIN D [Concomitant]
  7. IMODIUM [Concomitant]
     Active Substance: LOPERAMIDE HYDROCHLORIDE
  8. PREFORPRO PHAGES [Concomitant]

REACTIONS (3)
  - Product taste abnormal [None]
  - Eczema [None]
  - Product substitution issue [None]

NARRATIVE: CASE EVENT DATE: 20190920
